FAERS Safety Report 18543174 (Version 2)
Quarter: 2021Q1

REPORT INFORMATION
  Report Type: Spontaneous
  Country: JP (occurrence: JP)
  Receive Date: 20201125
  Receipt Date: 20210220
  Transmission Date: 20210419
  Serious: Yes (Other)
  Sender: FDA-Public Use
  Company Number: JP-ROCHE-2720116

PATIENT
  Age: 77 Day
  Sex: Female
  Weight: .45 kg

DRUGS (1)
  1. LUCENTIS [Suspect]
     Active Substance: RANIBIZUMAB
     Indication: RETINOPATHY OF PREMATURITY
     Route: 050
     Dates: start: 20200806

REACTIONS (3)
  - Disease progression [Recovering/Resolving]
  - Retinal detachment [Recovering/Resolving]
  - Retinopathy of prematurity [Recovering/Resolving]

NARRATIVE: CASE EVENT DATE: 20200828
